FAERS Safety Report 4372967-1 (Version None)
Quarter: 2004Q2

REPORT INFORMATION
  Report Type: 
  Country: None (occurrence: None)
  Receive Date: 20040526
  Receipt Date: 20040513
  Transmission Date: 20050107
  Serious: Yes (Other)
  Sender: FDA-Public Use
  Company Number: 2004213584US

PATIENT
  Age: 34 Year
  Sex: Female

DRUGS (1)
  1. HEPARIN SODIUM INJECTION [Suspect]
     Indication: ANTIPHOSPHOLIPID SYNDROME
     Dosage: SEE IMAGE
     Route: 058

REACTIONS (6)
  - BIOPSY SKIN ABNORMAL [None]
  - COMPLICATIONS OF MATERNAL EXPOSURE TO THERAPEUTIC DRUGS [None]
  - EXANTHEM [None]
  - INJECTION SITE ERYTHEMA [None]
  - PREMATURE BABY [None]
  - TYPE IV HYPERSENSITIVITY REACTION [None]
